FAERS Safety Report 7986268-3 (Version None)
Quarter: 2011Q4

REPORT INFORMATION
  Report Type: 
  Country: None (occurrence: None)
  Receive Date: 20111216
  Receipt Date: 20110120
  Transmission Date: 20120403
  Serious: No
  Sender: FDA-Public Use
  Company Number: US-BRISTOL-MYERS SQUIBB COMPANY-15501117

PATIENT
  Age: 10 Year
  Sex: Male
  Weight: 36 kg

DRUGS (1)
  1. ABILIFY [Suspect]
     Indication: AUTISM
     Dosage: FORM: LIQUID; INITIAL DOSE: 1MG, 2MG, 3MG, INCREASED TO 4MG AND 5MG (EVENING).

REACTIONS (1)
  - ENURESIS [None]
